FAERS Safety Report 5705664-8 (Version None)
Quarter: 2008Q2

REPORT INFORMATION
  Report Type: 
  Country: None (occurrence: None)
  Receive Date: 20080415
  Receipt Date: 20080407
  Transmission Date: 20081010
  Serious: Yes (Death, Other)
  Sender: FDA-Public Use
  Company Number: GB-BRISTOL-MYERS SQUIBB COMPANY-14150171

PATIENT
  Age: 69 Year
  Sex: Male

DRUGS (6)
  1. CYCLOPHOSPHAMIDE [Suspect]
  2. FLUDARABINE [Suspect]
  3. ACYCLOVIR [Concomitant]
  4. MAXOLON [Concomitant]
  5. ONDANSETRON [Concomitant]
  6. SEPTRIN [Concomitant]

REACTIONS (2)
  - LISTERIA SEPSIS [None]
  - PYREXIA [None]
